FAERS Safety Report 9350624 (Version 3)
Quarter: 2013Q3

REPORT INFORMATION
  Report Type: Spontaneous
  Country: US (occurrence: US)
  Receive Date: 20130617
  Receipt Date: 20130917
  Transmission Date: 20140515
  Serious: Yes (Life-Threatening, Hospitalization, Other)
  Sender: FDA-Public Use
  Company Number: US-JNJFOC-20130604192

PATIENT
  Age: 40 Year
  Sex: Male

DRUGS (1)
  1. STELARA [Suspect]
     Indication: PSORIASIS
     Route: 058
     Dates: start: 20110311, end: 20130318

REACTIONS (4)
  - Eosinophilic pneumonia [Recovering/Resolving]
  - Hypereosinophilic syndrome [Recovering/Resolving]
  - Ventricular hypokinesia [Unknown]
  - Ventricular fibrillation [Unknown]
